FAERS Safety Report 12484698 (Version 1)
Quarter: 2016Q2

REPORT INFORMATION
  Report Type: Spontaneous
  Country: US (occurrence: None)
  Receive Date: 20160620
  Receipt Date: 20160620
  Transmission Date: 20160815
  Serious: Yes (Other)
  Sender: FDA-Public Use
  Company Number: None

PATIENT
  Age: 38 Year
  Sex: Female
  Weight: 99.34 kg

DRUGS (1)
  1. ONEXTON [Suspect]
     Active Substance: BENZOYL PEROXIDE\CLINDAMYCIN PHOSPHATE
     Indication: ACNE
     Dosage: 1 PEA SIZE IN THE MORNING APPLIED TO A SURFACE, USUALLY THE SKIN
     Dates: end: 20160616

REACTIONS (3)
  - Exfoliative rash [None]
  - Skin burning sensation [None]
  - Rash erythematous [None]

NARRATIVE: CASE EVENT DATE: 20160616
